FAERS Safety Report 9174401 (Version 1)
Quarter: 2013Q1

REPORT INFORMATION
  Report Type: Spontaneous
  Country: GB (occurrence: GB)
  Receive Date: 20130320
  Receipt Date: 20130320
  Transmission Date: 20140127
  Serious: Yes (Life-Threatening, Hospitalization)
  Sender: FDA-Public Use
  Company Number: GB-JNJFOC-20040908070

PATIENT
  Age: 35 Year
  Sex: Female

DRUGS (3)
  1. MOTRIN [Suspect]
     Indication: TOOTHACHE
     Dates: start: 20030609, end: 20030609
  2. VENTOLIN [Concomitant]
     Dosage: PRN, INHALATION
     Route: 055
  3. BECLOMETHASONE [Concomitant]
     Indication: ASTHMA
     Dosage: 250 MCG, INHALATION
     Route: 055

REACTIONS (2)
  - Bronchospasm [Recovered/Resolved]
  - Respiratory failure [Recovered/Resolved]
